FAERS Safety Report 20334459 (Version 1)
Quarter: 2022Q1

REPORT INFORMATION
  Report Type: Other
  Country: US (occurrence: None)
  Receive Date: 20220114
  Receipt Date: 20220114
  Transmission Date: 20220423
  Serious: Yes (Death)
  Sender: FDA-Public Use
  Company Number: US-ROCHE-2406346

PATIENT
  Sex: Male

DRUGS (9)
  1. CELLCEPT [Suspect]
     Active Substance: MYCOPHENOLATE MOFETIL
     Indication: Iridocyclitis
     Dosage: 3 TABS(1500 MG) BID
     Route: 048
  2. CELLCEPT [Suspect]
     Active Substance: MYCOPHENOLATE MOFETIL
     Indication: Retinal neovascularisation
  3. CELLCEPT [Suspect]
     Active Substance: MYCOPHENOLATE MOFETIL
     Indication: Noninfective chorioretinitis
  4. AVASTIN [Suspect]
     Active Substance: BEVACIZUMAB
     Indication: Product used for unknown indication
     Route: 065
  5. HUMIRA [Concomitant]
     Active Substance: ADALIMUMAB
  6. TIMOLOL [Concomitant]
     Active Substance: TIMOLOL
     Dosage: BID OU
  7. BRIMONIDINE [Concomitant]
     Active Substance: BRIMONIDINE TARTRATE
     Dosage: BID OU
  8. LIDOCAINE HYDROCHLORIDE [Concomitant]
     Active Substance: LIDOCAINE HYDROCHLORIDE
     Dosage: 2 DROPS
  9. OPHTHOCHLOR [Concomitant]
     Active Substance: CHLORAMPHENICOL
     Dosage: 15 ML SOLUTION
     Route: 031

REACTIONS (3)
  - Death [Fatal]
  - Product prescribing error [Unknown]
  - Off label use [Unknown]
